FAERS Safety Report 21573481 (Version 1)
Quarter: 2022Q4

REPORT INFORMATION
  Report Type: Spontaneous
  Country: US (occurrence: US)
  Receive Date: 20221109
  Receipt Date: 20221109
  Transmission Date: 20230113
  Serious: No
  Sender: FDA-Public Use
  Company Number: US-SANOFI-01347607

PATIENT
  Age: 85 Year
  Sex: Female

DRUGS (1)
  1. TUBERSOL [Suspect]
     Active Substance: TUBERCULIN PURIFIED PROTEIN DERIVATIVE
     Indication: Tuberculosis
     Dosage: 0.1 ML, TOTAL
     Route: 023
     Dates: start: 20221101

REACTIONS (1)
  - Expired product administered [Unknown]

NARRATIVE: CASE EVENT DATE: 20221101
